FAERS Safety Report 7817167-5 (Version None)
Quarter: 2011Q4

REPORT INFORMATION
  Report Type: 
  Country: None (occurrence: None)
  Receive Date: 20111017
  Receipt Date: 20111017
  Transmission Date: 20120403
  Serious: Yes (Other)
  Sender: FDA-Public Use
  Company Number: None

PATIENT
  Sex: Female
  Weight: 58.059 kg

DRUGS (1)
  1. NUVARING [Suspect]
     Indication: CONTRACEPTION
     Dosage: 1 RING
     Route: 067
     Dates: start: 20110203, end: 20111013

REACTIONS (2)
  - PREGNANCY ON CONTRACEPTIVE [None]
  - MATERNAL EXPOSURE DURING PREGNANCY [None]
